FAERS Safety Report 9648173 (Version 4)
Quarter: 2013Q4

REPORT INFORMATION
  Report Type: Report from Study
  Country: US (occurrence: US)
  Receive Date: 20131028
  Receipt Date: 20131216
  Transmission Date: 20140711
  Serious: Yes (Hospitalization, Other)
  Sender: FDA-Public Use
  Company Number: PHEH2013US021623

PATIENT
  Age: 58 Year
  Sex: Female

DRUGS (19)
  1. AFINITOR [Suspect]
     Indication: ANGIOMYOLIPOMA
     Dosage: 10 MG, QD
     Route: 048
     Dates: start: 20131012, end: 20131017
  2. ZOFRAN [Concomitant]
  3. METHOCARBAMOL [Concomitant]
  4. METFORMIN [Concomitant]
  5. LISINOPRIL [Concomitant]
  6. ATENOLOL [Concomitant]
  7. REQUIP [Concomitant]
  8. CITALOPRAM HBR [Concomitant]
  9. TRAMADOL [Concomitant]
  10. LORAZEPAM [Concomitant]
  11. OXYCODONE [Concomitant]
  12. KRILL OIL [Concomitant]
  13. VITAMIN D3 [Concomitant]
  14. POTASSIUM [Concomitant]
  15. MIRALAX [Concomitant]
  16. KLONOPIN [Concomitant]
  17. ANTIDIARRHEAL [Concomitant]
  18. ROBAXIN [Concomitant]
  19. CELEXA [Concomitant]

REACTIONS (12)
  - Neoplasm [Unknown]
  - Fall [Unknown]
  - Blood pressure decreased [Unknown]
  - Loss of consciousness [Unknown]
  - Oedema peripheral [Not Recovered/Not Resolved]
  - Rash [Not Recovered/Not Resolved]
  - Contusion [Unknown]
  - Ligament sprain [Unknown]
  - Migraine [Not Recovered/Not Resolved]
  - Arthralgia [Not Recovered/Not Resolved]
  - Anxiety [Unknown]
  - Dyspnoea [Unknown]
